FAERS Safety Report 4920789-2 (Version None)
Quarter: 2006Q1

REPORT INFORMATION
  Report Type: 
  Country: None (occurrence: None)
  Receive Date: 20060217
  Receipt Date: 20060208
  Transmission Date: 20060701
  Serious: Yes (Hospitalization)
  Sender: FDA-Public Use
  Company Number: 2006PV008329

PATIENT
  Age: 53 Year
  Sex: Female
  Weight: 156.491 kg

DRUGS (9)
  1. BYETTA [Suspect]
     Indication: HYPERTENSION
     Dosage: 5 MCG; BID; SC
     Route: 058
     Dates: start: 20051101, end: 20060101
  2. DYAZIDE [Suspect]
     Dates: end: 20050201
  3. METFORMIN [Concomitant]
  4. AMARYL [Concomitant]
  5. LANTUS [Concomitant]
  6. AVANDIA [Concomitant]
  7. ZOLOFT [Concomitant]
  8. HYDROCHLORIATHIZIDE [Concomitant]
  9. ZESTRIL [Concomitant]

REACTIONS (2)
  - BILE DUCT STONE [None]
  - PANCREATITIS [None]
